FAERS Safety Report 8460042-6 (Version None)
Quarter: 2012Q2

REPORT INFORMATION
  Report Type: 
  Country: None (occurrence: None)
  Receive Date: 20120622
  Receipt Date: 20111015
  Transmission Date: 20120825
  Serious: Yes (Other)
  Sender: FDA-Public Use
  Company Number: PHHY2011US89941

PATIENT
  Sex: Male

DRUGS (3)
  1. LIORESAL [Suspect]
     Indication: PAIN
     Dosage: UNK UKN, UNK
     Route: 037
  2. CLONIDINE [Suspect]
  3. MORPHINE [Suspect]

REACTIONS (4)
  - SEDATION [None]
  - PERFORMANCE STATUS DECREASED [None]
  - DRUG INEFFECTIVE [None]
  - FEELING ABNORMAL [None]
